FAERS Safety Report 7432958-0 (Version None)
Quarter: 2011Q2

REPORT INFORMATION
  Report Type: 
  Country: None (occurrence: None)
  Receive Date: 20110422
  Receipt Date: 20110419
  Transmission Date: 20111010
  Serious: No
  Sender: FDA-Public Use
  Company Number: US-PFIZER INC-2011054683

PATIENT
  Sex: Female
  Weight: 54.422 kg

DRUGS (3)
  1. TOVIAZ [Suspect]
     Indication: CYSTITIS
     Dosage: 4 MG, DAILY
     Route: 048
     Dates: start: 20110308, end: 20110311
  2. CIPROFLOXACIN [Concomitant]
     Dosage: 500 MG, 2X/DAY
  3. PROSED/DS [Concomitant]
     Dosage: UNK, 3X/DAY

REACTIONS (3)
  - DIZZINESS [None]
  - FEELING ABNORMAL [None]
  - FATIGUE [None]
